FAERS Safety Report 11441699 (Version 1)
Quarter: 2015Q3

REPORT INFORMATION
  Report Type: Spontaneous
  Country: US (occurrence: US)
  Receive Date: 20150901
  Receipt Date: 20150901
  Transmission Date: 20151125
  Serious: No
  Sender: FDA-Public Use
  Company Number: US-MYLANLABS-2015M1018853

PATIENT
  Age: 62 Year
  Sex: Female

DRUGS (2)
  1. CAPECITABINE TABLETS USP [Suspect]
     Active Substance: CAPECITABINE
     Indication: COLON CANCER
     Dosage: 500 MG, BID, DAYS 1-14, THEN OFF 1 WK, THEN REPEAT
     Route: 048
     Dates: start: 20150519, end: 2015
  2. CAPECITABINE TABLETS USP [Suspect]
     Active Substance: CAPECITABINE
     Dosage: UNK
     Route: 048
     Dates: start: 2015

REACTIONS (2)
  - Rash papular [Not Recovered/Not Resolved]
  - Exfoliative rash [Not Recovered/Not Resolved]

NARRATIVE: CASE EVENT DATE: 20150527
